FAERS Safety Report 14536919 (Version 2)
Quarter: 2018Q3

REPORT INFORMATION
  Report Type: Spontaneous
  Country: BR (occurrence: BR)
  Receive Date: 20180215
  Receipt Date: 20180905
  Transmission Date: 20181010
  Serious: Yes (Death, Hospitalization, Other)
  Sender: FDA-Public Use
  Company Number: BR-BAYER-2018-026234

PATIENT
  Age: 53 Year
  Sex: Male

DRUGS (3)
  1. ZOLADEX [Concomitant]
     Active Substance: GOSERELIN ACETATE
     Dosage: 10.8 MG, UNK
     Dates: end: 20180117
  2. ZOMETA [Concomitant]
     Active Substance: ZOLEDRONIC ACID
     Dosage: 12 CYCLES
  3. XOFIGO [Suspect]
     Active Substance: RADIUM RA-223 DICHLORIDE
     Indication: PROSTATE CANCER
     Dosage: UNK
     Dates: start: 201712

REACTIONS (7)
  - Loss of consciousness [Not Recovered/Not Resolved]
  - Coma [None]
  - Pancytopenia [None]
  - Somnolence [Not Recovered/Not Resolved]
  - Sepsis [Fatal]
  - Ventricular tachycardia [None]
  - Confusional state [Not Recovered/Not Resolved]

NARRATIVE: CASE EVENT DATE: 2018
